FAERS Safety Report 8775299 (Version 1)
Quarter: 2012Q4

REPORT INFORMATION
  Report Type: 
  Country: AU (occurrence: AU)
  Receive Date: 20120910
  Receipt Date: 20121009
  Transmission Date: 20130627
  Serious: Yes (Death)
  Sender: FDA-Public Use
  Company Number: AU-009507513-1209AUS003505

PATIENT
  Age: 49 Year
  Sex: Male
  Weight: 75 kg

DRUGS (1)
  1. VICTRELIS 200 MG [Suspect]
     Indication: HEPATITIS C
     Dosage: 12 DF, UNK
     Route: 048
     Dates: end: 20120826

REACTIONS (3)
  - Hepatic cirrhosis [Fatal]
  - Adverse event [Unknown]
  - Paracentesis [Unknown]
